FAERS Safety Report 5229404-4 (Version None)
Quarter: 2007Q1

REPORT INFORMATION
  Report Type: 
  Country: None (occurrence: None)
  Receive Date: 20061201
  Receipt Date: 20060911
  Transmission Date: 20070707
  Serious: No
  Sender: FDA-Public Use
  Company Number: 2006PV021054

PATIENT
  Age: 61 Year
  Sex: Female
  Weight: 91.6266 kg

DRUGS (15)
  1. BYETTA [Suspect]
     Indication: DIABETES MELLITUS NON-INSULIN-DEPENDENT
     Dosage: SEE IMAGE
     Route: 058
     Dates: start: 20060810, end: 20060909
  2. BYETTA [Suspect]
     Indication: DIABETES MELLITUS NON-INSULIN-DEPENDENT
     Dosage: SEE IMAGE
     Route: 058
     Dates: start: 20060910
  3. METFORMIN HCL [Concomitant]
  4. GLIPIZIDE [Concomitant]
  5. COREG [Concomitant]
  6. BUSTIRONE HCL [Concomitant]
  7. LIPITOR [Concomitant]
  8. ZETIA [Concomitant]
  9. HYDROCHLOROTHIAZIDE [Concomitant]
  10. AMITRIPTYLINE HCL [Concomitant]
  11. ALTACE [Concomitant]
  12. AVAPRO [Concomitant]
  13. EFFEXOR [Concomitant]
  14. CALCIUM CITRATE [Concomitant]
  15. MEGA 6 - VITAMINS [Concomitant]

REACTIONS (2)
  - BLOOD GLUCOSE INCREASED [None]
  - DRUG EFFECT DECREASED [None]
